FAERS Safety Report 5748912-0 (Version None)
Quarter: 2008Q2

REPORT INFORMATION
  Report Type: 
  Country: None (occurrence: None)
  Receive Date: 20080526
  Receipt Date: 20080516
  Transmission Date: 20081010
  Serious: Yes (Other)
  Sender: FDA-Public Use
  Company Number: FR-SP-2008-00206

PATIENT
  Age: 82 Year
  Sex: Male

DRUGS (6)
  1. IMMUCYST [Suspect]
     Indication: TRANSITIONAL CELL CARCINOMA
     Route: 065
     Dates: start: 20070220, end: 20070327
  2. ADANCOR [Concomitant]
  3. SOTALOL HCL [Concomitant]
  4. PRAVADUAL [Concomitant]
  5. VASTAREL [Concomitant]
  6. PERMIXON [Concomitant]

REACTIONS (1)
  - TUBERCULOSIS BLADDER [None]
